FAERS Safety Report 16274345 (Version 1)
Quarter: 2019Q2

REPORT INFORMATION
  Report Type: Spontaneous
  Country: US (occurrence: US)
  Receive Date: 20190504
  Receipt Date: 20190504
  Transmission Date: 20190711
  Serious: Yes (Hospitalization, Other)
  Sender: FDA-Public Use
  Company Number: US-ACCORD-125253

PATIENT
  Age: 76 Year
  Sex: Male

DRUGS (12)
  1. LEVETIRACETAM. [Suspect]
     Active Substance: LEVETIRACETAM
     Indication: SEIZURE PROPHYLAXIS
     Dosage: TWICE DAILY
  2. CEFTAZIDIME/CEFTAZIDIME PENTAHYDRATE [Concomitant]
  3. LEVOTHYROXINE. [Concomitant]
     Active Substance: LEVOTHYROXINE
  4. VANCOMYCIN [Concomitant]
     Active Substance: VANCOMYCIN
  5. TRAZODONE [Concomitant]
     Active Substance: TRAZODONE HYDROCHLORIDE
  6. SERTRALINE [Concomitant]
     Active Substance: SERTRALINE HYDROCHLORIDE
  7. PROCHLORPERAZINE. [Concomitant]
     Active Substance: PROCHLORPERAZINE
  8. GABAPENTIN. [Concomitant]
     Active Substance: GABAPENTIN
     Dosage: THREE TIMES DAILY
  9. HALOPERIDOL. [Concomitant]
     Active Substance: HALOPERIDOL
  10. BUSPIRONE [Concomitant]
     Active Substance: BUSPIRONE HYDROCHLORIDE
  11. LORAZEPAM. [Concomitant]
     Active Substance: LORAZEPAM
  12. METRONIDAZOLE. [Concomitant]
     Active Substance: METRONIDAZOLE

REACTIONS (3)
  - Subarachnoid haemorrhage [Unknown]
  - Acute hepatic failure [Recovered/Resolved]
  - Fall [Unknown]
